FAERS Safety Report 17412288 (Version 1)
Quarter: 2020Q1

REPORT INFORMATION
  Report Type: Spontaneous
  Country: US (occurrence: US)
  Receive Date: 20200129
  Receipt Date: 20200129
  Transmission Date: 20200409
  Serious: Yes (Hospitalization)
  Sender: FDA-Public Use
  Company Number: None

PATIENT
  Age: 73 Year
  Sex: Female

DRUGS (8)
  1. LEVOTHYROXIN TAB [Concomitant]
  2. POT CHLORIDE TAB [Concomitant]
  3. ARIPIPRAZOLE TAB [Concomitant]
  4. UDENYCA [Suspect]
     Active Substance: PEGFILGRASTIM-CBQV
     Indication: BREAST CANCER FEMALE
     Dosage: ?          OTHER DOSE:6MG/0.6ML;OTHER FREQUENCY:24 HR AFTER CHEMOT;?
     Route: 058
     Dates: start: 20191219
  5. TRIAMT/HCTZ [Concomitant]
     Active Substance: HYDROCHLOROTHIAZIDE\TRIAMTERENE
  6. VENLAFAXINE CAP [Concomitant]
  7. ATENOLOL TAB [Concomitant]
     Active Substance: ATENOLOL
  8. ATORVASTATIN TAB [Concomitant]
     Active Substance: ATORVASTATIN

REACTIONS (1)
  - Heart rate increased [None]

NARRATIVE: CASE EVENT DATE: 20191219
